FAERS Safety Report 9142147 (Version 2)
Quarter: 2013Q2

REPORT INFORMATION
  Report Type: Spontaneous
  Country: US (occurrence: US)
  Receive Date: 20130305
  Receipt Date: 20130404
  Transmission Date: 20140414
  Serious: No
  Sender: FDA-Public Use
  Company Number: US-AMGEN-USASP2013013935

PATIENT
  Age: 44 Year
  Sex: Female
  Weight: 94.2 kg

DRUGS (3)
  1. ENBREL [Suspect]
     Indication: RHEUMATOID ARTHRITIS
     Dosage: 50 MG, QWK
     Route: 058
     Dates: start: 20110101
  2. PREDNISONE [Concomitant]
     Dosage: 15 MG, QD
     Route: 048
     Dates: start: 20120724
  3. PLAQUENIL                          /00072602/ [Concomitant]
     Dosage: 200 MG, QD
     Route: 048
     Dates: start: 20120724

REACTIONS (8)
  - Sneezing [Recovered/Resolved]
  - Rhinorrhoea [Recovered/Resolved]
  - Injection site erythema [Not Recovered/Not Resolved]
  - Injection site swelling [Not Recovered/Not Resolved]
  - Injection site pruritus [Not Recovered/Not Resolved]
  - Injection site pain [Not Recovered/Not Resolved]
  - Injection site warmth [Not Recovered/Not Resolved]
  - Injection site rash [Unknown]
